FAERS Safety Report 22325460 (Version 1)
Quarter: 2023Q2

REPORT INFORMATION
  Report Type: Spontaneous
  Country: US (occurrence: None)
  Receive Date: 20230515
  Receipt Date: 20230515
  Transmission Date: 20230721
  Serious: No
  Sender: FDA-Public Use
  Company Number: None

PATIENT
  Age: 48 Year
  Sex: Male
  Weight: 88.9 kg

DRUGS (1)
  1. IMATINIB [Suspect]
     Active Substance: IMATINIB
     Dosage: 100MG ONCE DAILY ORAL?
     Route: 048
     Dates: start: 202201, end: 202303

REACTIONS (2)
  - Rash [None]
  - Pruritus [None]
